FAERS Safety Report 9453002 (Version 3)
Quarter: 2015Q4

REPORT INFORMATION
  Report Type: Report from Study
  Country: US (occurrence: US)
  Receive Date: 20130812
  Receipt Date: 20151022
  Transmission Date: 20160305
  Serious: Yes (Other)
  Sender: FDA-Public Use
  Company Number: US-ROCHE-1258448

PATIENT
  Sex: Male

DRUGS (18)
  1. BYETTA [Concomitant]
     Active Substance: EXENATIDE
     Indication: DIABETES MELLITUS
     Route: 065
     Dates: end: 201307
  2. OXYCODONE [Concomitant]
     Active Substance: OXYCODONE
     Indication: BACK PAIN
     Dosage: ONLY TAKES 5 MG OCCASIONALLY
     Route: 065
  3. METFORMIN [Concomitant]
     Active Substance: METFORMIN HYDROCHLORIDE
     Indication: DIABETES MELLITUS
     Route: 048
     Dates: end: 201307
  4. DIAZEPAM. [Concomitant]
     Active Substance: DIAZEPAM
     Dosage: AT NIGHT
     Route: 065
  5. ASPIRIN. [Concomitant]
     Active Substance: ASPIRIN
  6. PROMETHAZINE [Concomitant]
     Active Substance: PROMETHAZINE\PROMETHAZINE HYDROCHLORIDE
     Indication: NAUSEA
     Route: 048
     Dates: end: 201307
  7. CELEXA (UNITED STATES) [Concomitant]
  8. GLIMEPIRIDE. [Concomitant]
     Active Substance: GLIMEPIRIDE
     Indication: DIABETES MELLITUS
     Route: 048
     Dates: end: 201307
  9. INDOMETHACIN. [Concomitant]
     Active Substance: INDOMETHACIN
     Indication: MIGRAINE
     Route: 065
     Dates: end: 201307
  10. LANTUS [Concomitant]
     Active Substance: INSULIN GLARGINE
     Indication: DIABETES MELLITUS
     Dosage: DOSE: 80 UNITS, HS
     Route: 065
     Dates: end: 201307
  11. PEGASYS [Suspect]
     Active Substance: PEGINTERFERON ALFA-2A
     Indication: CHRONIC HEPATITIS C
     Dosage: 1 IN THE LEG, DOSE: 1, PROCLICK AUTOINJECTOR 180 MCG/0.5 ML
     Route: 058
     Dates: start: 201211, end: 201307
  12. WELLBUTRIN [Concomitant]
     Active Substance: BUPROPION HYDROCHLORIDE
     Route: 048
     Dates: end: 201307
  13. PROPANOLOLI HYDROCHLORIDUM [Concomitant]
     Indication: HEADACHE
     Dosage: DRUG REPORTED AS PROPANOLOL
     Route: 048
     Dates: end: 201307
  14. BENADRYL [Concomitant]
     Active Substance: DIPHENHYDRAMINE HYDROCHLORIDE
     Route: 048
  15. COPEGUS [Suspect]
     Active Substance: RIBAVIRIN
     Indication: CHRONIC HEPATITIS C
     Route: 048
     Dates: start: 201211, end: 201307
  16. INCIVEK [Suspect]
     Active Substance: TELAPREVIR
     Indication: HEPATITIS C
     Route: 048
     Dates: start: 201211, end: 201302
  17. INSULIN [Concomitant]
     Active Substance: INSULIN NOS
     Indication: DIABETES MELLITUS
     Route: 065
     Dates: end: 201307
  18. LISINOPRIL. [Concomitant]
     Active Substance: LISINOPRIL
     Route: 048
     Dates: end: 201307

REACTIONS (11)
  - Seizure [Recovered/Resolved]
  - Transient ischaemic attack [Recovered/Resolved]
  - Psychotic disorder [Recovered/Resolved]
  - Irritability [Recovered/Resolved]
  - Suicidal ideation [Recovered/Resolved]
  - Homicidal ideation [Recovered/Resolved]
  - Fatigue [Recovered/Resolved]
  - Judgement impaired [Recovered/Resolved]
  - Hepatitis C [Not Recovered/Not Resolved]
  - Abnormal behaviour [Recovered/Resolved]
  - Weight decreased [Not Recovered/Not Resolved]
